FAERS Safety Report 7671464-5 (Version None)
Quarter: 2011Q3

REPORT INFORMATION
  Report Type: 
  Country: None (occurrence: None)
  Receive Date: 20110809
  Receipt Date: 20110803
  Transmission Date: 20111222
  Serious: Yes (Other)
  Sender: FDA-Public Use
  Company Number: IT-PFIZER INC-2011178485

PATIENT
  Age: 51 Year
  Sex: Female

DRUGS (4)
  1. ERBITUX [Suspect]
     Indication: RECTAL CANCER
     Dosage: 630 MG, CYCLIC
     Route: 042
     Dates: start: 20100723
  2. CAMPTOSAR [Suspect]
     Indication: RECTAL CANCER
     Dosage: 280 MG, CYCLIC
     Route: 042
     Dates: start: 20100723
  3. FLUOROURACIL [Suspect]
     Indication: RECTAL CANCER
     Dosage: 4100 MG, CYCLIC
     Route: 042
     Dates: start: 20100723
  4. CALCIUM FOLINATE [Concomitant]

REACTIONS (4)
  - DRY SKIN [None]
  - HYPERTRANSAMINASAEMIA [None]
  - NAUSEA [None]
  - ALOPECIA [None]
